FAERS Safety Report 22324856 (Version 1)
Quarter: 2023Q2

REPORT INFORMATION
  Report Type: Spontaneous
  Country: US (occurrence: None)
  Receive Date: 20230515
  Receipt Date: 20230515
  Transmission Date: 20230722
  Serious: No
  Sender: FDA-Public Use
  Company Number: None

PATIENT
  Age: 59 Year
  Sex: Female

DRUGS (1)
  1. DIMETHYL FUMARATE [Suspect]
     Active Substance: DIMETHYL FUMARATE
     Dosage: FREQUENCY : TWICE A DAY;?
     Route: 048
     Dates: start: 202304, end: 202305

REACTIONS (5)
  - Pneumonia [None]
  - Infection [None]
  - Therapy interrupted [None]
  - Gastric disorder [None]
  - Flushing [None]

NARRATIVE: CASE EVENT DATE: 20230511
